FAERS Safety Report 4705957-7 (Version None)
Quarter: 2005Q2

REPORT INFORMATION
  Report Type: 
  Country: None (occurrence: None)
  Receive Date: 20050628
  Receipt Date: 20041110
  Transmission Date: 20051028
  Serious: Yes (Other)
  Sender: FDA-Public Use
  Company Number: VISP-PR-0411S-0453

PATIENT
  Age: 78 Year
  Sex: Female
  Weight: 94.9832 kg

DRUGS (15)
  1. VISIPAQUE [Suspect]
     Indication: CORONARY ARTERY DISEASE
     Dosage: 21 ML, SINGLE DOSE, I.A.
     Route: 013
     Dates: start: 20040914, end: 20040914
  2. LASIX [Concomitant]
  3. POTASSIUM CHLORIDE [Concomitant]
  4. ALDACTONE [Concomitant]
  5. PLAVIX [Concomitant]
  6. COREG [Concomitant]
  7. IMDUR [Concomitant]
  8. ZOCOR [Concomitant]
  9. NICOTINIC ACID (NIASPAN) [Concomitant]
  10. ZESTRIL [Concomitant]
  11. ASPIRIN [Concomitant]
  12. SYNTHROID [Concomitant]
  13. BLINDED STUDY DRUG (NESIRITIDE OR PLACEBO) [Concomitant]
  14. GLYCERYL TRINITRATE (NITROGLYCERIN) [Concomitant]
  15. INSULIN HUMAN INJECTION [Concomitant]

REACTIONS (3)
  - NAUSEA [None]
  - RENAL FAILURE ACUTE [None]
  - VOMITING [None]
